APPROVED DRUG PRODUCT: POTASSIUM CITRATE
Active Ingredient: POTASSIUM CITRATE
Strength: 15MEQ
Dosage Form/Route: TABLET, EXTENDED RELEASE;ORAL
Application: A212799 | Product #002 | TE Code: AB
Applicant: BIONPHARMA INC
Approved: Jun 29, 2020 | RLD: No | RS: No | Type: RX